FAERS Safety Report 9560361 (Version 1)
Quarter: 2013Q3

REPORT INFORMATION
  Report Type: Spontaneous
  Country: CA (occurrence: CA)
  Receive Date: 20130927
  Receipt Date: 20130927
  Transmission Date: 20140515
  Serious: Yes (Other)
  Sender: FDA-Public Use
  Company Number: CA-BAYER-2013-112906

PATIENT
  Age: 61 Year
  Sex: Male
  Weight: 81.18 kg

DRUGS (1)
  1. CIPRO [Suspect]
     Indication: DIVERTICULUM
     Dosage: UNK
     Dates: start: 20091226

REACTIONS (5)
  - Toxicity to various agents [Not Recovered/Not Resolved]
  - Neuropathy peripheral [Not Recovered/Not Resolved]
  - Paraesthesia [Not Recovered/Not Resolved]
  - Tendonitis [Not Recovered/Not Resolved]
  - Burning sensation [Not Recovered/Not Resolved]
